FAERS Safety Report 6020166-X (Version None)
Quarter: 2008Q4

REPORT INFORMATION
  Report Type: 
  Country: None (occurrence: None)
  Receive Date: 20081226
  Receipt Date: 20081216
  Transmission Date: 20090506
  Serious: Yes (Hospitalization)
  Sender: FDA-Public Use
  Company Number: US-BAYER-200814936BCC

PATIENT
  Age: 19 Year
  Sex: Male

DRUGS (2)
  1. ALKA-SELTZER PLUS COLD SPARKLING ORIGINAL EFFERVESCENT TABLET [Suspect]
     Indication: DRUG USE FOR UNKNOWN INDICATION
     Dates: start: 20081216
  2. VICODIN [Concomitant]

REACTIONS (4)
  - CHEST PAIN [None]
  - HYPERSENSITIVITY [None]
  - LIP SWELLING [None]
  - PRURITUS GENERALISED [None]
